FAERS Safety Report 5016308-5 (Version None)
Quarter: 2006Q2

REPORT INFORMATION
  Report Type: 
  Country: None (occurrence: None)
  Receive Date: 20060531
  Receipt Date: 20060509
  Transmission Date: 20061013
  Serious: Yes (Death, Life-Threatening, Other)
  Sender: FDA-Public Use
  Company Number: JP200605002229

PATIENT
  Age: 55 Year
  Sex: Male

DRUGS (2)
  1. ZYPREXA [Suspect]
     Indication: SCHIZOPHRENIA
     Dosage: 20 MG, ORAL
     Route: 048
     Dates: start: 20060201
  2. CHLORPROMAZINE HCL [Concomitant]

REACTIONS (9)
  - ALANINE AMINOTRANSFERASE INCREASED [None]
  - ASPARTATE AMINOTRANSFERASE INCREASED [None]
  - BLOOD CHOLESTEROL DECREASED [None]
  - BLOOD TRIGLYCERIDES DECREASED [None]
  - FRACTURE [None]
  - HYPOPROTEINAEMIA [None]
  - PNEUMONIA [None]
  - SCHIZOPHRENIA [None]
  - THERAPY NON-RESPONDER [None]
